FAERS Safety Report 6372928-7 (Version None)
Quarter: 2009Q3

REPORT INFORMATION
  Report Type: 
  Country: None (occurrence: None)
  Receive Date: 20090924
  Receipt Date: 20090922
  Transmission Date: 20100115
  Serious: Yes (Hospitalization)
  Sender: FDA-Public Use
  Company Number: US-EISAI INC.-E7867-00064-CLI-US

PATIENT
  Age: 67 Year
  Sex: Male
  Weight: 86 kg

DRUGS (6)
  1. GLIADEL [Suspect]
     Indication: GLIOBLASTOMA
     Route: 018
     Dates: start: 20090810
  2. ATENOLOL [Concomitant]
     Dosage: 25 MG DAILY
     Route: 048
  3. ZOCOR [Concomitant]
     Dosage: 40 MG DAILY
     Route: 048
  4. KEPPRA [Concomitant]
     Route: 048
  5. DECADRON [Concomitant]
  6. PEPCID [Concomitant]
     Route: 048

REACTIONS (8)
  - ANAEMIA [None]
  - COGNITIVE DISORDER [None]
  - CYSTIC LYMPHANGIOMA [None]
  - DEHYDRATION [None]
  - HYPERGLYCAEMIA [None]
  - HYPONATRAEMIA [None]
  - MUSCULAR WEAKNESS [None]
  - URINARY TRACT INFECTION [None]
